FAERS Safety Report 4596903-8 (Version None)
Quarter: 2005Q1

REPORT INFORMATION
  Report Type: 
  Country: None (occurrence: None)
  Receive Date: 20050228
  Receipt Date: 20050223
  Transmission Date: 20050727
  Serious: No
  Sender: FDA-Public Use
  Company Number: 2004UW25672

PATIENT
  Age: 57 Year
  Sex: Female
  Weight: 61.6892 kg

DRUGS (6)
  1. CRESTOR [Suspect]
     Indication: LOW DENSITY LIPOPROTEIN INCREASED
     Dosage: 10 MG QD PO
     Route: 048
     Dates: start: 20040715, end: 20041109
  2. NASACORT [Concomitant]
  3. AMBIEN [Concomitant]
  4. RETIN-A [Concomitant]
  5. CALCIUM GLUCONATE [Concomitant]
  6. ALPRAZOLAM [Concomitant]

REACTIONS (8)
  - ALANINE AMINOTRANSFERASE INCREASED [None]
  - ASPARTATE AMINOTRANSFERASE INCREASED [None]
  - BILIARY NEOPLASM [None]
  - CHROMATURIA [None]
  - FATIGUE [None]
  - FLATULENCE [None]
  - OEDEMA PERIPHERAL [None]
  - SWELLING FACE [None]
